FAERS Safety Report 23367476 (Version 1)
Quarter: 2024Q1

REPORT INFORMATION
  Report Type: Spontaneous
  Country: CN (occurrence: CN)
  Receive Date: 20240104
  Receipt Date: 20240104
  Transmission Date: 20240410
  Serious: Yes (Hospitalization)
  Sender: FDA-Public Use
  Company Number: CN-PFIZER INC-PV202300208706

PATIENT
  Age: 48 Year
  Sex: Male

DRUGS (1)
  1. XALKORI [Suspect]
     Active Substance: CRIZOTINIB
     Indication: Lung neoplasm
     Dosage: 250 MG, 2X/DAY
     Route: 048
     Dates: start: 20230225, end: 20231120

REACTIONS (4)
  - Oedema [Recovering/Resolving]
  - Tachypnoea [Recovering/Resolving]
  - Pleural effusion [Recovering/Resolving]
  - Oedema peripheral [Recovering/Resolving]

NARRATIVE: CASE EVENT DATE: 20231121
